FAERS Safety Report 23129873 (Version 2)
Quarter: 2023Q4

REPORT INFORMATION
  Report Type: Spontaneous
  Country: JP (occurrence: None)
  Receive Date: 20231031
  Receipt Date: 20231116
  Transmission Date: 20240110
  Serious: No
  Sender: FDA-Public Use
  Company Number: 2023A244611

PATIENT

DRUGS (2)
  1. BRILINTA [Suspect]
     Active Substance: TICAGRELOR
     Dosage: DOSE UNKNOWN
     Route: 048
  2. ASPIRIN [Concomitant]
     Active Substance: ASPIRIN
     Dosage: DOSE UNKNOWN

REACTIONS (1)
  - No adverse event [Unknown]
